FAERS Safety Report 21895620 (Version 1)
Quarter: 2023Q1

REPORT INFORMATION
  Report Type: Spontaneous
  Country: CA (occurrence: CA)
  Receive Date: 20230123
  Receipt Date: 20230123
  Transmission Date: 20230417
  Serious: Yes (Other)
  Sender: FDA-Public Use
  Company Number: CA-JNJFOC-20230137842

PATIENT
  Age: 57 Year
  Sex: Male
  Weight: 102 kg

DRUGS (2)
  1. REMICADE [Suspect]
     Active Substance: INFLIXIMAB
     Indication: Crohn^s disease
     Route: 041
  2. INFLIXIMAB [Suspect]
     Active Substance: INFLIXIMAB
     Indication: Crohn^s disease
     Route: 042

REACTIONS (5)
  - Muscle spasms [Unknown]
  - Clostridium difficile infection [Unknown]
  - Condition aggravated [Unknown]
  - Constipation [Unknown]
  - Off label use [Unknown]
